FAERS Safety Report 4728747-8 (Version None)
Quarter: 2005Q3

REPORT INFORMATION
  Report Type: 
  Country: None (occurrence: None)
  Receive Date: 20050729
  Receipt Date: 20050728
  Transmission Date: 20060218
  Serious: Yes (Hospitalization)
  Sender: FDA-Public Use
  Company Number: US-GLAXOSMITHKLINE-A0568125A

PATIENT
  Age: 74 Year
  Sex: Female

DRUGS (3)
  1. AVANDIA [Suspect]
     Dosage: 4MG PER DAY
     Route: 048
     Dates: start: 20050425
  2. GLIPIZIDE [Concomitant]
  3. PROCARDIA [Concomitant]

REACTIONS (2)
  - BLOOD SODIUM ABNORMAL [None]
  - WEIGHT DECREASED [None]
